FAERS Safety Report 9175086 (Version 1)
Quarter: 2013Q1

REPORT INFORMATION
  Report Type: Spontaneous
  Country: US (occurrence: None)
  Receive Date: 20120530
  Receipt Date: 20120530
  Transmission Date: 20140127
  Serious: Yes (Other)
  Sender: FDA-Public Use
  Company Number: 2011SP011135

PATIENT
  Age: 73 Year
  Sex: Male

DRUGS (1)
  1. ASMANEX TWISTHALER [Suspect]
     Indication: ASTHMA
     Dosage: 220 MCG ; QPM ; INH
     Dates: start: 20101214

REACTIONS (2)
  - Feeling abnormal [None]
  - Nausea [None]
